FAERS Safety Report 14829789 (Version 1)
Quarter: 2018Q2

REPORT INFORMATION
  Report Type: Spontaneous
  Country: BR (occurrence: BR)
  Receive Date: 20180430
  Receipt Date: 20180430
  Transmission Date: 20180711
  Serious: Yes (Life-Threatening, Hospitalization)
  Sender: FDA-Public Use
  Company Number: BR-FRESENIUS KABI-FK201805208

PATIENT
  Age: 1 Day
  Sex: Female
  Weight: .88 kg

DRUGS (8)
  1. GLUCOSE 50% [Suspect]
     Active Substance: DEXTROSE
     Indication: PREMATURE BABY
     Route: 042
     Dates: start: 20180421
  2. GENTAMICINE [Concomitant]
     Active Substance: GENTAMICIN
     Indication: PRODUCT USED FOR UNKNOWN INDICATION
     Route: 042
     Dates: start: 20180421
  3. AMINOVEN INFANT 10% [Suspect]
     Active Substance: AMINO ACIDS
     Indication: PREMATURE BABY
     Route: 042
     Dates: start: 20180421
  4. LIPOVENOES MCT 20% [Suspect]
     Active Substance: EGG PHOSPHOLIPIDS\GLYCERIN\MEDIUM-CHAIN TRIGLYCERIDES\SOYBEAN OIL
     Indication: PREMATURE BABY
     Route: 042
     Dates: start: 20180421
  5. WATER FOR INJECTIONS [Suspect]
     Active Substance: WATER
     Indication: PREMATURE BABY
     Route: 042
     Dates: start: 20180421
  6. AMPICILLIN [Concomitant]
     Active Substance: AMPICILLIN
     Indication: PRODUCT USED FOR UNKNOWN INDICATION
     Route: 042
     Dates: start: 20180421
  7. CUROSURF [Concomitant]
     Active Substance: PORACTANT ALFA
     Indication: PRODUCT USED FOR UNKNOWN INDICATION
     Route: 048
     Dates: start: 20180421
  8. CAFFEINE. [Concomitant]
     Active Substance: CAFFEINE
     Indication: PRODUCT USED FOR UNKNOWN INDICATION
     Route: 042
     Dates: start: 20180421

REACTIONS (1)
  - Hyperglycaemia [Recovered/Resolved]

NARRATIVE: CASE EVENT DATE: 20180422
